FAERS Safety Report 6070997-5 (Version None)
Quarter: 2009Q1

REPORT INFORMATION
  Report Type: 
  Country: None (occurrence: None)
  Receive Date: 20090209
  Receipt Date: 20090130
  Transmission Date: 20090719
  Serious: Yes (Other)
  Sender: FDA-Public Use
  Company Number: B0510400A

PATIENT
  Age: 31 Year
  Sex: Female
  Weight: 102 kg

DRUGS (1)
  1. PAROXETINE HCL [Suspect]
     Indication: ANXIETY
     Dosage: 30MG PER DAY
     Route: 048

REACTIONS (3)
  - DRUG EXPOSURE DURING PREGNANCY [None]
  - LIVE BIRTH [None]
  - PRE-ECLAMPSIA [None]
